FAERS Safety Report 5639803-4 (Version None)
Quarter: 2008Q1

REPORT INFORMATION
  Report Type: 
  Country: None (occurrence: None)
  Receive Date: 20080226
  Receipt Date: 20080226
  Transmission Date: 20080703
  Serious: No
  Sender: FDA-Public Use
  Company Number: None

PATIENT
  Sex: Female

DRUGS (3)
  1. ZOLOFT [Suspect]
     Indication: ANXIETY
     Dosage: 100MG ONE DAILY ORAL
     Route: 048
     Dates: start: 20070411, end: 20071001
  2. ZOLOFT [Suspect]
     Indication: BIPOLAR DISORDER
     Dosage: 100MG ONE DAILY ORAL
     Route: 048
     Dates: start: 20070411, end: 20071001
  3. SERTRALINE [Suspect]

REACTIONS (2)
  - PHARMACEUTICAL PRODUCT COMPLAINT [None]
  - THINKING ABNORMAL [None]
